FAERS Safety Report 10653159 (Version 1)
Quarter: 2014Q4

REPORT INFORMATION
  Report Type: Spontaneous
  Country: CH (occurrence: CH)
  Receive Date: 20141215
  Receipt Date: 20141215
  Transmission Date: 20150529
  Serious: Yes (Life-Threatening, Hospitalization, Other)
  Sender: FDA-Public Use
  Company Number: CH-GLAXOSMITHKLINE-CH2014033817

PATIENT

DRUGS (1)
  1. LAMICTAL [Suspect]
     Active Substance: LAMOTRIGINE
     Indication: GENERALISED TONIC-CLONIC SEIZURE
     Route: 048
     Dates: start: 20140523, end: 20140627

REACTIONS (14)
  - Leukocytosis [Recovered/Resolved]
  - Pyrexia [Recovered/Resolved]
  - Lymphadenopathy [Unknown]
  - Hypoalbuminaemia [Unknown]
  - Rash maculo-papular [Recovered/Resolved]
  - Drug hypersensitivity [Not Recovered/Not Resolved]
  - Acute tonsillitis [Recovered/Resolved]
  - Blood electrolytes abnormal [Recovered/Resolved]
  - Pleural effusion [Recovered/Resolved]
  - Prothrombin time prolonged [Recovered/Resolved]
  - Swelling face [Recovered/Resolved]
  - Skin test positive [Recovered/Resolved]
  - Drug reaction with eosinophilia and systemic symptoms [Recovered/Resolved]
  - Hepatic enzyme increased [Recovered/Resolved]

NARRATIVE: CASE EVENT DATE: 201406
